FAERS Safety Report 12655144 (Version 1)
Quarter: 2016Q3

REPORT INFORMATION
  Report Type: Spontaneous
  Country: US (occurrence: US)
  Receive Date: 20160816
  Receipt Date: 20160816
  Transmission Date: 20161109
  Serious: No
  Sender: FDA-Public Use
  Company Number: US-APOTEX-2016AP009515

PATIENT
  Age: 9 Year
  Sex: Male

DRUGS (8)
  1. ARIPIPRAZOLE TABLETS [Suspect]
     Active Substance: ARIPIPRAZOLE
     Dosage: 2 MG DAILY; LATER DOSE WAS INCREASED TO 3 MG DAILY
     Route: 048
  2. ARIPIPRAZOLE TABLETS [Suspect]
     Active Substance: ARIPIPRAZOLE
     Indication: PRODUCT USED FOR UNKNOWN INDICATION
     Dosage: 1 MG, DAILY
     Route: 048
  3. SERTRALINE HYDROCHLORIDE. [Suspect]
     Active Substance: SERTRALINE HYDROCHLORIDE
     Indication: PRODUCT USED FOR UNKNOWN INDICATION
     Dosage: 10 MG, DAILY
     Route: 048
  4. ARIPIPRAZOLE TABLETS [Suspect]
     Active Substance: ARIPIPRAZOLE
     Dosage: 3 MG DAILY LATER THE DOSE WAS REDUCED TO 2 MG DAILY
     Route: 048
  5. GUANFACINE. [Suspect]
     Active Substance: GUANFACINE
     Indication: AGGRESSION
     Dosage: 1.5 MG, Q.H.S.
     Route: 048
  6. GUANFACINE. [Suspect]
     Active Substance: GUANFACINE
     Indication: ANXIETY
     Dosage: 0.5 MG, BID
     Route: 048
  7. GUANFACINE. [Suspect]
     Active Substance: GUANFACINE
     Indication: SLEEP DISORDER
  8. GUANFACINE. [Suspect]
     Active Substance: GUANFACINE
     Indication: PSYCHOMOTOR HYPERACTIVITY
     Dosage: 1 MG, BID
     Route: 048

REACTIONS (7)
  - Grandiosity [Recovered/Resolved]
  - Irritability [Recovered/Resolved]
  - Sleep disorder [Recovered/Resolved]
  - Depressed mood [Recovering/Resolving]
  - Euphoric mood [Recovered/Resolved]
  - Anxiety [Recovering/Resolving]
  - Insomnia [Recovered/Resolved]
